FAERS Safety Report 7657582-6 (Version None)
Quarter: 2011Q3

REPORT INFORMATION
  Report Type: 
  Country: None (occurrence: None)
  Receive Date: 20110804
  Receipt Date: 20110722
  Transmission Date: 20111222
  Serious: Yes (Life-Threatening, Other)
  Sender: FDA-Public Use
  Company Number: DE-AMGEN-DEUSP2011019962

PATIENT
  Age: 65 Year
  Sex: Female
  Weight: 86.5 kg

DRUGS (14)
  1. EBRANTIL                           /00631801/ [Concomitant]
  2. CALCIUM SANDOZ                     /00108001/ [Concomitant]
  3. AMLO TEVA [Concomitant]
     Dosage: 10 MG, UNK
  4. CARBAMAZEPINE [Concomitant]
  5. PROLIA [Suspect]
     Indication: OSTEOPOROSIS POSTMENOPAUSAL
     Dosage: 60 MG, UNK
     Route: 058
     Dates: start: 20110111, end: 20110111
  6. VERAPAMIL [Concomitant]
     Dosage: UNK
     Route: 048
     Dates: start: 20010101
  7. MIRCERA [Concomitant]
     Dosage: UNK
     Dates: start: 20081028
  8. ONE ALPHA [Concomitant]
  9. DEKRISTOL [Concomitant]
     Dosage: UNK
     Dates: start: 20030822
  10. LOSARTAN POTASSIUM [Concomitant]
     Dosage: 100 MG, UNK
  11. LEVOTHYROXINE SODIUM [Concomitant]
  12. INSULIN ACTRAPID                   /00646001/ [Concomitant]
  13. PROTAPHANE                         /00030513/ [Concomitant]
  14. TORSEMIDE [Concomitant]
     Dosage: UNK
     Route: 048
     Dates: start: 20050906

REACTIONS (4)
  - TETANY [None]
  - BACK PAIN [None]
  - HYPOCALCAEMIA [None]
  - BLOOD PARATHYROID HORMONE INCREASED [None]
